FAERS Safety Report 8782371 (Version 1)
Quarter: 2012Q4

REPORT INFORMATION
  Report Type: 
  Country: US (occurrence: US)
  Receive Date: 20120913
  Receipt Date: 20120913
  Transmission Date: 20130627
  Serious: Yes (Hospitalization)
  Sender: FDA-Public Use
  Company Number: US-ELI_LILLY_AND_COMPANY-US201209001838

PATIENT
  Age: 85 Year
  Sex: Male

DRUGS (2)
  1. HUMULIN 70/30 [Suspect]
     Indication: TYPE 2 DIABETES MELLITUS
     Dosage: UNK, unknown
     Dates: end: 201201
  2. NOVOLOG MIX 70/30 [Concomitant]
     Dosage: UNK, unknown

REACTIONS (2)
  - Hospitalisation [Unknown]
  - Wrong drug administered [Not Recovered/Not Resolved]
